FAERS Safety Report 23203338 (Version 1)
Quarter: 2023Q4

REPORT INFORMATION
  Report Type: Report from Study
  Country: CA (occurrence: CA)
  Receive Date: 20231120
  Receipt Date: 20231120
  Transmission Date: 20240110
  Serious: Yes (Hospitalization, Other)
  Sender: FDA-Public Use
  Company Number: CA-JNJFOC-20220904243

PATIENT
  Age: 27 Year
  Sex: Female
  Weight: 43.6 kg

DRUGS (2)
  1. REMICADE [Suspect]
     Active Substance: INFLIXIMAB
     Indication: Crohn^s disease
     Dosage: THERAPY START DATE ALSO REPORTED AS 24/AUG/2021, UNIT DOSE: 5 MG/KG
     Route: 041
     Dates: start: 201212
  2. REMICADE [Suspect]
     Active Substance: INFLIXIMAB
     Dosage: THE THERAPY START DATE AND END DATE WAS MENTIONED AS 31-AUG-2023
     Route: 041
     Dates: start: 201212

REACTIONS (8)
  - Infected cyst [Unknown]
  - Peritoneal cyst [Unknown]
  - Wound drainage [Unknown]
  - Ovarian cyst [Unknown]
  - In vitro fertilisation [Unknown]
  - Weight gain poor [Unknown]
  - Weight decreased [Unknown]
  - Off label use [Unknown]

NARRATIVE: CASE EVENT DATE: 20121201
